FAERS Safety Report 24693655 (Version 1)
Quarter: 2024Q4

REPORT INFORMATION
  Report Type: Spontaneous
  Country: CO (occurrence: CO)
  Receive Date: 20241204
  Receipt Date: 20241204
  Transmission Date: 20250115
  Serious: Yes (Hospitalization, Other)
  Sender: NOVO NORDISK
  Company Number: CO-NOVOPROD-1327032

PATIENT
  Age: 78 Year
  Sex: Female
  Weight: 68 kg

DRUGS (7)
  1. OZEMPIC [Suspect]
     Active Substance: SEMAGLUTIDE
     Indication: Type 2 diabetes mellitus
     Dosage: 0.5 MG, QW
     Route: 058
  2. SACUBITRIL\VALSARTAN [Concomitant]
     Active Substance: SACUBITRIL\VALSARTAN
     Indication: Product used for unknown indication
     Dosage: UNK, BID
     Route: 048
  3. IPRATROPIUM BROMIDE [Concomitant]
     Active Substance: IPRATROPIUM BROMIDE
     Indication: Product used for unknown indication
     Dosage: 2 PUFF, TID
     Route: 055
     Dates: start: 20040929
  4. ESOMEPRAZOLE [Concomitant]
     Active Substance: ESOMEPRAZOLE
     Indication: Gastrointestinal disorder
     Dosage: 20 MG, QD
     Route: 048
  5. EMPAGLIFLOZIN [Concomitant]
     Active Substance: EMPAGLIFLOZIN
     Indication: Product used for unknown indication
     Dosage: 10 MG, BID
     Route: 048
     Dates: start: 20240928
  6. ASPIRIN [Concomitant]
     Active Substance: ASPIRIN
     Indication: Cardiac disorder
     Dosage: UNK, QD
     Route: 048
  7. BISOPROLOL [Concomitant]
     Active Substance: BISOPROLOL
     Indication: Product used for unknown indication
     Dosage: 2.5 MG, QD
     Route: 048

REACTIONS (1)
  - Cerebrovascular accident [Not Recovered/Not Resolved]

NARRATIVE: CASE EVENT DATE: 20241009
